FAERS Safety Report 10050554 (Version 1)
Quarter: 2014Q2

REPORT INFORMATION
  Report Type: Spontaneous
  Country: US (occurrence: US)
  Receive Date: 20140401
  Receipt Date: 20140401
  Transmission Date: 20141212
  Serious: No
  Sender: FDA-Public Use
  Company Number: US-ASTRAZENECA-2013SE84624

PATIENT
  Age: 75 Year
  Sex: Female
  Weight: 97.5 kg

DRUGS (8)
  1. NEXIUM [Suspect]
     Indication: GASTROOESOPHAGEAL REFLUX DISEASE
     Route: 048
     Dates: start: 2011
  2. B12 [Concomitant]
     Indication: IMMUNODEFICIENCY
  3. COMBIVENT [Concomitant]
     Indication: ASTHMA
  4. COMBIVENT [Concomitant]
     Indication: CHRONIC OBSTRUCTIVE PULMONARY DISEASE
  5. DIAZEPAM [Concomitant]
     Indication: ANXIETY
     Dosage: 2.5 DAILY
     Route: 048
  6. LEVOTHYROXINE [Concomitant]
     Indication: THYROID DISORDER
     Dosage: DAILY
     Route: 048
  7. PAXIL CR [Concomitant]
     Indication: ANXIETY
     Route: 048
     Dates: start: 1994
  8. SENECOT [Concomitant]
     Indication: CONSTIPATION
     Dosage: TID
     Route: 055

REACTIONS (2)
  - Gait disturbance [Not Recovered/Not Resolved]
  - Somnolence [Not Recovered/Not Resolved]
